FAERS Safety Report 10078532 (Version 1)
Quarter: 2014Q2

REPORT INFORMATION
  Report Type: Spontaneous
  Country: AT (occurrence: AT)
  Receive Date: 20140415
  Receipt Date: 20140415
  Transmission Date: 20141212
  Serious: Yes (Other)
  Sender: FDA-Public Use
  Company Number: AT-JNJFOC-20140313010

PATIENT
  Age: 86 Year
  Sex: Female

DRUGS (10)
  1. XARELTO [Suspect]
     Indication: CEREBROVASCULAR ACCIDENT PROPHYLAXIS
     Route: 048
     Dates: start: 20130707, end: 20130902
  2. XARELTO [Suspect]
     Indication: ATRIAL FIBRILLATION
     Route: 048
     Dates: start: 20130707, end: 20130902
  3. FURON [Concomitant]
     Route: 065
  4. CONCOR [Concomitant]
     Route: 065
     Dates: start: 20130705
  5. PANTOPRAZOLE [Concomitant]
     Indication: HELICOBACTER GASTRITIS
     Route: 065
     Dates: start: 20130705, end: 20130719
  6. TAVANIC [Concomitant]
     Route: 065
     Dates: start: 20130705, end: 20130712
  7. PANTOLOC [Concomitant]
     Dosage: 40
     Route: 065
  8. KLACID (CLARITHROMYCIN) [Concomitant]
     Dosage: 500
     Route: 065
  9. FENISTIL-RETARD [Concomitant]
     Route: 065
  10. DEXAMETHASONE SODIUM PHOSPHATE/GENTAMICIN SULFATE [Concomitant]
     Route: 065

REACTIONS (4)
  - Oedema peripheral [Recovered/Resolved]
  - Epistaxis [Recovered/Resolved]
  - Rash pustular [Recovered/Resolved]
  - Rash [Recovered/Resolved]
